FAERS Safety Report 20829782 (Version 1)
Quarter: 2022Q2

REPORT INFORMATION
  Report Type: Spontaneous
  Country: US (occurrence: US)
  Receive Date: 20220513
  Receipt Date: 20220513
  Transmission Date: 20220721
  Serious: No
  Sender: FDA-Public Use
  Company Number: US-PFIZER INC-202200075822

PATIENT
  Age: 83 Year
  Sex: Male
  Weight: 72.57 kg

DRUGS (4)
  1. CELECOXIB [Suspect]
     Active Substance: CELECOXIB
     Dosage: UNK
  2. IBUPROFEN [Suspect]
     Active Substance: IBUPROFEN
     Dosage: UNK
  3. MELOXICAM [Suspect]
     Active Substance: MELOXICAM
     Dosage: UNK
  4. PREDNISONE [Suspect]
     Active Substance: PREDNISONE
     Dosage: 10 MG

REACTIONS (1)
  - Drug ineffective [Unknown]
